FAERS Safety Report 7558369-5 (Version None)
Quarter: 2011Q2

REPORT INFORMATION
  Report Type: 
  Country: None (occurrence: None)
  Receive Date: 20110620
  Receipt Date: 20110607
  Transmission Date: 20111010
  Serious: Yes (Other)
  Sender: FDA-Public Use
  Company Number: PHHY2011US51343

PATIENT
  Sex: Female

DRUGS (14)
  1. DIOVAN HCT [Suspect]
     Dosage: 1 DF, QD
     Route: 048
  2. VITAMIN B-12 [Concomitant]
  3. LEVOTHYROXINE SODIUM [Concomitant]
  4. TOPROL-XL [Concomitant]
     Dosage: 50 MG, UNK
  5. CALCIUM AND ERGOCALCIFEROL [Concomitant]
     Dosage: 1200 MG CALC WITH VITAMIN D 2 PER DAY
  6. PRAVASTATIN [Concomitant]
     Dosage: 20 MG, AT BEDTIME
  7. LORTAB [Concomitant]
     Indication: MUSCULOSKELETAL DISCOMFORT
  8. NORVASC [Concomitant]
     Dosage: 5 MG, UNK
  9. ALENDRONATE SODIUM [Concomitant]
     Dosage: 35 MG, (ONE WEEKLY IN THE MORNING)
  10. MELOXICAM [Concomitant]
  11. ASPIRIN [Concomitant]
     Dosage: 81 MG DAILY
  12. SERTRALINE [Concomitant]
  13. ALPRAZOLAM [Concomitant]
     Dosage: 2 MG, AT BEDTIME
  14. LORTAB [Concomitant]
     Indication: BURSITIS

REACTIONS (6)
  - ATRIOVENTRICULAR BLOCK [None]
  - TRANSIENT ISCHAEMIC ATTACK [None]
  - CAROTID ARTERY OCCLUSION [None]
  - MALAISE [None]
  - PNEUMONIA PRIMARY ATYPICAL [None]
  - NASOPHARYNGITIS [None]
